FAERS Safety Report 4320268-X (Version None)
Quarter: 2004Q1

REPORT INFORMATION
  Report Type: 
  Country: None (occurrence: None)
  Receive Date: 20040317
  Receipt Date: 20040309
  Transmission Date: 20041129
  Serious: Yes (Life-Threatening, Hospitalization, Other)
  Sender: FDA-Public Use
  Company Number: US-JNJFOC-20040103802

PATIENT
  Age: 38 Year
  Sex: Male
  Weight: 78.2 kg

DRUGS (9)
  1. REMICADE [Suspect]
     Indication: CROHN'S DISEASE
     Dosage: 400 MG, INTRAVENOUS
     Route: 042
     Dates: start: 20031119
  2. MERCAPTOPURINE [Concomitant]
  3. ACIPHEX [Concomitant]
  4. LISINOPRIL [Concomitant]
  5. TRAMADOL HCL [Concomitant]
  6. VENLAFAXINE (VENLAFAXINE) [Concomitant]
  7. TRAZADONE (TRAZODONE) [Concomitant]
  8. PREDNISONE [Concomitant]
  9. MERCAPTOPURINE [Concomitant]

REACTIONS (1)
  - HISTOPLASMOSIS [None]
